FAERS Safety Report 6253013-1 (Version None)
Quarter: 2009Q2

REPORT INFORMATION
  Report Type: 
  Country: None (occurrence: None)
  Receive Date: 20090629
  Receipt Date: 20090629
  Transmission Date: 20091009
  Serious: Yes (Other)
  Sender: FDA-Public Use
  Company Number: None

PATIENT
  Age: 75 Year
  Sex: Female
  Weight: 61.2356 kg

DRUGS (1)
  1. AMBIEN CR [Suspect]
     Indication: INSOMNIA
     Dosage: 1 TAB AT NIGHT
     Dates: start: 20071225, end: 20071225

REACTIONS (5)
  - CONTUSION [None]
  - GAIT DISTURBANCE [None]
  - MEMORY IMPAIRMENT [None]
  - PAIN [None]
  - SOMNAMBULISM [None]
